FAERS Safety Report 7183139-X (Version None)
Quarter: 2010Q4

REPORT INFORMATION
  Report Type: 
  Country: None (occurrence: None)
  Receive Date: 20101208
  Receipt Date: 20101126
  Transmission Date: 20110411
  Serious: Yes (Hospitalization)
  Sender: FDA-Public Use
  Company Number: 022903

PATIENT
  Sex: Male

DRUGS (20)
  1. ROTIGOTINE (ROTIGOTINE) [Suspect]
     Indication: PARKINSON'S DISEASE
     Dosage: (2 MG TRANSDERMAL) ; (4 MG TRANSDERMAL) ; (6 MG TRANSDERMAL) ; (8 MG TRANSDERMAL)
     Route: 062
     Dates: start: 20100903, end: 20100909
  2. ROTIGOTINE (ROTIGOTINE) [Suspect]
     Indication: PARKINSON'S DISEASE
     Dosage: (2 MG TRANSDERMAL) ; (4 MG TRANSDERMAL) ; (6 MG TRANSDERMAL) ; (8 MG TRANSDERMAL)
     Route: 062
     Dates: start: 20100910, end: 20100916
  3. ROTIGOTINE (ROTIGOTINE) [Suspect]
     Indication: PARKINSON'S DISEASE
     Dosage: (2 MG TRANSDERMAL) ; (4 MG TRANSDERMAL) ; (6 MG TRANSDERMAL) ; (8 MG TRANSDERMAL)
     Route: 062
     Dates: start: 20100917, end: 20100923
  4. ROTIGOTINE (ROTIGOTINE) [Suspect]
     Indication: PARKINSON'S DISEASE
     Dosage: (2 MG TRANSDERMAL) ; (4 MG TRANSDERMAL) ; (6 MG TRANSDERMAL) ; (8 MG TRANSDERMAL)
     Route: 062
     Dates: start: 20100924
  5. REBAMIPIDE [Concomitant]
  6. MENESIT [Concomitant]
  7. ARTANE [Concomitant]
  8. DOPS [Concomitant]
  9. ARICEPT [Concomitant]
  10. TAMSULOSIN HCL [Concomitant]
  11. LUDIOMIL /00331902/ [Concomitant]
  12. UBRETID [Concomitant]
  13. DIAZEPAM [Concomitant]
  14. TRYPTANOL /00002202/ [Concomitant]
  15. LENDORMIN [Concomitant]
  16. SILECE [Concomitant]
  17. RINLAXER [Concomitant]
  18. LOXONIN /00890702/ [Concomitant]
  19. VOLTAREN [Concomitant]
  20. FERROMIA /00023516/ [Concomitant]

REACTIONS (2)
  - GASTRIC ULCER HAEMORRHAGE [None]
  - IRON DEFICIENCY ANAEMIA [None]
